FAERS Safety Report 5762072-1 (Version None)
Quarter: 2008Q3

REPORT INFORMATION
  Report Type: 
  Country: None (occurrence: None)
  Receive Date: 20080604
  Receipt Date: 20080521
  Transmission Date: 20090109
  Serious: Yes (Other)
  Sender: FDA-Public Use
  Company Number: JP-1165901

PATIENT

DRUGS (1)
  1. BSS PLUS [Suspect]
     Dosage: IRRGATION OCULAR
     Route: 031

REACTIONS (3)
  - INJURY [None]
  - PHARMACEUTICAL PRODUCT COMPLAINT [None]
  - SKIN LACERATION [None]
